FAERS Safety Report 17527235 (Version 4)
Quarter: 2020Q2

REPORT INFORMATION
  Report Type: Spontaneous
  Country: US (occurrence: US)
  Receive Date: 20200311
  Receipt Date: 20200618
  Transmission Date: 20200713
  Serious: Yes (Other)
  Sender: FDA-Public Use
  Company Number: US-PFIZER INC-2020105291

PATIENT
  Age: 66 Year
  Sex: Female
  Weight: 95.25 kg

DRUGS (2)
  1. PREMARIN [Suspect]
     Active Substance: ESTROGENS, CONJUGATED
     Dosage: UNK, 1X/DAY
  2. PREMARIN [Suspect]
     Active Substance: ESTROGENS, CONJUGATED
     Indication: VULVOVAGINAL DRYNESS
     Dosage: UNK, 2X/DAY (FOR A WEEK)

REACTIONS (10)
  - Vaginal haemorrhage [Not Recovered/Not Resolved]
  - Vulvovaginal pain [Not Recovered/Not Resolved]
  - Sensitive skin [Unknown]
  - Feeling abnormal [Unknown]
  - Haemorrhoids [Unknown]
  - Off label use [Unknown]
  - Vaginal discharge [Unknown]
  - Emotional disorder [Unknown]
  - Lichen sclerosus [Unknown]
  - Pruritus [Unknown]
